FAERS Safety Report 10327332 (Version 1)
Quarter: 2014Q3

REPORT INFORMATION
  Report Type: Report from Study
  Country: GB (occurrence: GB)
  Receive Date: 20140721
  Receipt Date: 20140721
  Transmission Date: 20150326
  Serious: Yes (Death)
  Sender: FDA-Public Use
  Company Number: GB-ROCHE-1436667

PATIENT
  Age: 78 Year
  Sex: Female

DRUGS (7)
  1. DEXAMETHASONE. [Concomitant]
     Active Substance: DEXAMETHASONE
     Indication: PANCREATIC CARCINOMA
     Route: 048
     Dates: start: 20130612
  2. LOPERAMIDE [Concomitant]
     Active Substance: LOPERAMIDE
     Indication: PANCREATIC CARCINOMA
     Route: 048
     Dates: start: 20130612
  3. DEXAMETHASONE. [Concomitant]
     Active Substance: DEXAMETHASONE
     Route: 048
     Dates: start: 20130612
  4. MITOMYCIN. [Concomitant]
     Active Substance: MITOMYCIN
     Indication: PANCREATIC CARCINOMA
     Route: 040
     Dates: start: 20130612
  5. DEXTROSE, SODIUM CHLORIDE, AND POTASSIUM CHLORIDE [Concomitant]
     Active Substance: DEXTROSE\POTASSIUM CHLORIDE\SODIUM CHLORIDE
     Indication: PANCREATIC CARCINOMA
     Route: 042
     Dates: start: 20130612
  6. DOMPERIDONE [Concomitant]
     Active Substance: DOMPERIDONE
     Indication: PANCREATIC CARCINOMA
     Route: 048
     Dates: start: 20130612
  7. CAPECITABINE [Suspect]
     Active Substance: CAPECITABINE
     Indication: PANCREATIC CARCINOMA
     Route: 048
     Dates: end: 20130612

REACTIONS (1)
  - Death [Fatal]
